FAERS Safety Report 25478598 (Version 1)
Quarter: 2025Q2

REPORT INFORMATION
  Report Type: Other
  Country: FR (occurrence: FR)
  Receive Date: 20250625
  Receipt Date: 20250625
  Transmission Date: 20250717
  Serious: Yes (Death)
  Sender: NUVO PHARMACEUTICALS
  Company Number: FR-Nuvo Pharmaceuticals Inc-2179350

PATIENT
  Age: 37 Year
  Sex: Male

DRUGS (6)
  1. DIAZEPAM [Suspect]
     Active Substance: DIAZEPAM
     Indication: Product used for unknown indication
  2. METHADONE [Suspect]
     Active Substance: METHADONE HYDROCHLORIDE
  3. NORDAZEPAM [Suspect]
     Active Substance: NORDAZEPAM
  4. ACETAMINOPHEN [Suspect]
     Active Substance: ACETAMINOPHEN
  5. BACLOFEN [Suspect]
     Active Substance: BACLOFEN
  6. PAROXETINE [Suspect]
     Active Substance: PAROXETINE

REACTIONS (1)
  - Toxicity to various agents [Fatal]
